FAERS Safety Report 5824093-X (Version None)
Quarter: 2008Q3

REPORT INFORMATION
  Report Type: 
  Country: None (occurrence: None)
  Receive Date: 20080728
  Receipt Date: 20080714
  Transmission Date: 20090109
  Serious: Yes (Death, Life-Threatening, Hospitalization, Disabling, Other)
  Sender: FDA-Public Use
  Company Number: GB-BRISTOL-MYERS SQUIBB COMPANY-14278139

PATIENT
  Age: 72 Year
  Sex: Male
  Weight: 60 kg

DRUGS (4)
  1. DASATINIB [Suspect]
     Dosage: DOSAGE = 1DAY
     Route: 048
     Dates: start: 20050406, end: 20060523
  2. GLEEVEC [Suspect]
     Dosage: DOSAGE = 1DAY
     Route: 048
     Dates: start: 20001101, end: 20040218
  3. NILOTINIB [Suspect]
     Dosage: DOSAGE = 1DAY
     Route: 048
     Dates: start: 20060705, end: 20070221
  4. HYDROXYCARBAMIDE [Concomitant]
     Dosage: DOSAGE = 1DAY
     Route: 048
     Dates: start: 20070215, end: 20070801

REACTIONS (1)
  - NON-SMALL CELL LUNG CANCER [None]
